FAERS Safety Report 24444464 (Version 2)
Quarter: 2024Q4

REPORT INFORMATION
  Report Type: Report from Study
  Country: US (occurrence: US)
  Receive Date: 20241016
  Receipt Date: 20241017
  Transmission Date: 20250115
  Serious: No
  Sender: ROCHE
  Company Number: US-ROCHE-2805970

PATIENT
  Age: 19 Year
  Sex: Female

DRUGS (3)
  1. RITUXAN [Suspect]
     Active Substance: RITUXIMAB
     Indication: Connective tissue disorder
     Dosage: 2 DOSES? FREQUENCY TEXT:1
     Route: 042
     Dates: start: 202005
  2. RITUXAN [Suspect]
     Active Substance: RITUXIMAB
     Indication: Encephalopathy
  3. GAMUNEX-C [Concomitant]
     Active Substance: HUMAN IMMUNOGLOBULIN G
     Indication: Immunoglobulins decreased
     Dosage: ABOUT A 3-MONTH SCHEDULE

REACTIONS (2)
  - Off label use [Unknown]
  - No adverse event [Unknown]
